FAERS Safety Report 4380695-1 (Version None)
Quarter: 2004Q2

REPORT INFORMATION
  Report Type: 
  Country: None (occurrence: None)
  Receive Date: 20040616
  Receipt Date: 20040610
  Transmission Date: 20050107
  Serious: Yes (Death, Life-Threatening, Hospitalization)
  Sender: FDA-Public Use
  Company Number: 2004CG01117

PATIENT
  Age: 51 Year
  Sex: Female

DRUGS (9)
  1. IRESSA [Suspect]
     Indication: NON-SMALL CELL LUNG CANCER
     Dosage: 250 MG DAILY PO
     Route: 048
     Dates: start: 20040427, end: 20040608
  2. ZOLPIDEM TARTRATE [Concomitant]
  3. XANAX [Concomitant]
  4. MOTILIUM [Concomitant]
  5. ATHYMIL [Concomitant]
  6. TOPLEXIL [Concomitant]
  7. SERETIDE [Concomitant]
  8. NUREFLEX [Concomitant]
  9. VARNOLINE [Concomitant]

REACTIONS (1)
  - DYSPNOEA EXACERBATED [None]
